FAERS Safety Report 9419429 (Version 1)
Quarter: 2013Q3

REPORT INFORMATION
  Report Type: Spontaneous
  Country: HR (occurrence: HR)
  Receive Date: 20130725
  Receipt Date: 20130725
  Transmission Date: 20140515
  Serious: Yes (Other)
  Sender: FDA-Public Use
  Company Number: HR-PFIZER INC-2013215356

PATIENT
  Age: 69 Year
  Sex: Female
  Weight: 60 kg

DRUGS (4)
  1. SORTIS [Suspect]
     Indication: HYPERCHOLESTEROLAEMIA
     Dosage: 20 MG, 1X/DAY
     Route: 048
  2. SINTROM [Concomitant]
     Indication: AORTIC VALVE REPLACEMENT
     Dosage: UNK
     Route: 048
  3. CONCOR COR [Concomitant]
     Indication: ARRHYTHMIA
     Dosage: 1.25 MG, 1X/DAY
     Route: 048
  4. RYTMONORM [Concomitant]
     Indication: ARRHYTHMIA
     Dosage: 150 MG, 2X/DAY
     Route: 048

REACTIONS (13)
  - Arrhythmia [Unknown]
  - Asthenia [Recovered/Resolved]
  - Sensation of heaviness [Recovered/Resolved]
  - Gait disturbance [Recovered/Resolved]
  - Fatigue [Recovered/Resolved]
  - Myalgia [Recovered/Resolved]
  - Cardiac discomfort [Recovered/Resolved]
  - Hyperhidrosis [Recovered/Resolved]
  - Gait disturbance [Recovered/Resolved]
  - Breast enlargement [Recovered/Resolved]
  - Increased appetite [Recovered/Resolved]
  - Dry skin [Recovered/Resolved]
  - Skin fissures [Recovered/Resolved]
